FAERS Safety Report 20040475 (Version 1)
Quarter: 2021Q4

REPORT INFORMATION
  Report Type: Spontaneous
  Country: US (occurrence: None)
  Receive Date: 20211106
  Receipt Date: 20211106
  Transmission Date: 20220303
  Serious: Yes (Disabling)
  Sender: FDA-Public Use
  Company Number: None

PATIENT
  Age: 60 Year
  Sex: Male

DRUGS (1)
  1. AVASTIN [Suspect]
     Active Substance: BEVACIZUMAB
     Indication: Radiation necrosis

REACTIONS (7)
  - Brain oedema [None]
  - Cerebrovascular accident [None]
  - Balance disorder [None]
  - Musculoskeletal disorder [None]
  - Musculoskeletal disorder [None]
  - Dizziness [None]
  - Magnetic resonance imaging head abnormal [None]

NARRATIVE: CASE EVENT DATE: 20210406
